FAERS Safety Report 9736478 (Version 1)
Quarter: 2013Q4

REPORT INFORMATION
  Report Type: Spontaneous
  Country: US (occurrence: US)
  Receive Date: 20131206
  Receipt Date: 20131206
  Transmission Date: 20140711
  Serious: Yes (Other)
  Sender: FDA-Public Use
  Company Number: US-SA-2013SA126896

PATIENT
  Sex: 0

DRUGS (2)
  1. AMARYL [Suspect]
     Route: 065
  2. METFORMIN [Suspect]
     Route: 065

REACTIONS (1)
  - Cerebrovascular accident [Unknown]
